FAERS Safety Report 6454238-2 (Version None)
Quarter: 2009Q4

REPORT INFORMATION
  Report Type: 
  Country: None (occurrence: None)
  Receive Date: 20091102
  Receipt Date: 20080819
  Transmission Date: 20100525
  Serious: Yes (Other)
  Sender: FDA-Public Use
  Company Number: AECAN200800182

PATIENT
  Age: 54 Year
  Sex: Female

DRUGS (4)
  1. GAMUNEX [Suspect]
     Indication: ANAEMIA
     Dosage: 207.5 GM; TOTAL; IV
     Route: 042
     Dates: start: 20080808, end: 20080808
  2. GAMUNEX [Suspect]
     Indication: BREAST CANCER
     Dosage: 207.5 GM; TOTAL; IV
     Route: 042
     Dates: start: 20080808, end: 20080808
  3. GAMUNEX [Suspect]
  4. GAMUNEX [Suspect]

REACTIONS (1)
  - HAEMOLYSIS [None]
